FAERS Safety Report 15827011 (Version 1)
Quarter: 2019Q1

REPORT INFORMATION
  Report Type: Spontaneous
  Country: JP (occurrence: JP)
  Receive Date: 20190115
  Receipt Date: 20190115
  Transmission Date: 20190417
  Serious: Yes (Hospitalization)
  Sender: FDA-Public Use
  Company Number: JP-B.I. PHARMACEUTICALS,INC./RIDGEFIELD-2019-NB-000102

PATIENT
  Age: 76 Year
  Sex: Female

DRUGS (2)
  1. BI-SIFROL [Suspect]
     Active Substance: PRAMIPEXOLE
     Indication: PARKINSON^S DISEASE
     Route: 048
  2. BI-SIFROL [Suspect]
     Active Substance: PRAMIPEXOLE
     Route: 048

REACTIONS (2)
  - Unevaluable event [Unknown]
  - Inappropriate schedule of product administration [Unknown]
